FAERS Safety Report 4658172-X (Version None)
Quarter: 2005Q2

REPORT INFORMATION
  Report Type: 
  Country: None (occurrence: None)
  Receive Date: 20050509
  Receipt Date: 20050419
  Transmission Date: 20051028
  Serious: Yes (Other)
  Sender: FDA-Public Use
  Company Number: 2004220887US

PATIENT
  Age: 42 Year
  Sex: Male
  Weight: 112.9457 kg

DRUGS (8)
  1. CELEBREX [Suspect]
     Indication: OSTEOARTHRITIS
  2. VENLAFAXINE HCL [Concomitant]
  3. VALPROATE SODIUM [Concomitant]
  4. TEMAZEPAM [Concomitant]
  5. CLOPIDOGREL BISULFATE [Concomitant]
  6. PRAVASTATIN SODIUM [Concomitant]
  7. RAMIPRIL [Concomitant]
  8. GLIBOMET (GLIBENCLAMIDE, METFORMIN HYDROCHLORIDE) [Concomitant]

REACTIONS (3)
  - CEREBROVASCULAR ACCIDENT [None]
  - CONVULSION [None]
  - TRANSIENT ISCHAEMIC ATTACK [None]
